FAERS Safety Report 11203883 (Version 2)
Quarter: 2015Q3

REPORT INFORMATION
  Report Type: Report from Study
  Country: DE (occurrence: DE)
  Receive Date: 20150619
  Receipt Date: 20150817
  Transmission Date: 20151125
  Serious: Yes (Other)
  Sender: FDA-Public Use
  Company Number: PHHY2015DE048105

PATIENT
  Age: 83 Year
  Sex: Male
  Weight: 78 kg

DRUGS (9)
  1. AFINITOR [Suspect]
     Active Substance: EVEROLIMUS
     Dosage: 5 MG, QD
     Route: 048
     Dates: start: 20150408, end: 20150506
  2. AFINITOR [Suspect]
     Active Substance: EVEROLIMUS
     Dosage: 7.5 MG, QD
     Route: 048
     Dates: start: 20150507
  3. NEPHROTRANS [Concomitant]
     Indication: RENAL FAILURE
     Dosage: 840 MG, QD
     Route: 048
     Dates: start: 20140801
  4. RAMIPRIL. [Concomitant]
     Active Substance: RAMIPRIL
     Indication: HYPERTENSION
     Dosage: 5 MG, QD
     Route: 048
     Dates: start: 20140801
  5. AFINITOR [Suspect]
     Active Substance: EVEROLIMUS
     Indication: METASTATIC RENAL CELL CARCINOMA
     Dosage: 10 MG, QD
     Route: 048
     Dates: start: 20150311, end: 20150325
  6. METOPROLOL [Concomitant]
     Active Substance: METOPROLOL
     Indication: HYPERTENSION
     Dosage: 75 MG, QD
     Route: 048
     Dates: start: 20140801
  7. TORASEMIDE [Concomitant]
     Active Substance: TORSEMIDE
     Indication: HYPERTENSION
     Dosage: 10 MG, QD
     Route: 048
     Dates: start: 20140801
  8. FINASTERID [Concomitant]
     Indication: ALOPECIA
     Dosage: 5 MG, QD
     Route: 048
     Dates: start: 20140801
  9. DOXAZOSIN [Concomitant]
     Active Substance: DOXAZOSIN\DOXAZOSIN MESYLATE
     Indication: HYPERTENSION
     Dosage: 4 MG, QD
     Route: 048
     Dates: start: 20140801

REACTIONS (15)
  - Epistaxis [Recovered/Resolved]
  - Pharyngitis [Recovered/Resolved]
  - Pollakiuria [Recovered/Resolved]
  - Epistaxis [Recovered/Resolved]
  - Oedema peripheral [Not Recovered/Not Resolved]
  - Haemoptysis [Recovered/Resolved]
  - Micturition urgency [Recovered/Resolved]
  - Oropharyngeal pain [Recovered/Resolved]
  - Tumour haemorrhage [Recovered/Resolved]
  - Dysuria [Recovered/Resolved]
  - Haematoma [Recovered/Resolved]
  - Epistaxis [Recovered/Resolved]
  - Cheilitis [Recovered/Resolved]
  - Asthenia [Recovered/Resolved]
  - Back pain [Not Recovered/Not Resolved]

NARRATIVE: CASE EVENT DATE: 20150316
